FAERS Safety Report 4944600-9 (Version None)
Quarter: 2006Q1

REPORT INFORMATION
  Report Type: 
  Country: None (occurrence: None)
  Receive Date: 20060315
  Receipt Date: 20060308
  Transmission Date: 20060701
  Serious: Yes (Other)
  Sender: FDA-Public Use
  Company Number: US-ROCHE-439571

PATIENT
  Age: 42 Year
  Sex: Female

DRUGS (2)
  1. PEGASYS [Suspect]
     Dosage: ROUTE WAS REPORTED AS INJECTABLE.
     Route: 050
     Dates: start: 20051115
  2. COPEGUS [Suspect]
     Route: 048
     Dates: start: 20051115

REACTIONS (1)
  - VASCULITIS [None]
